FAERS Safety Report 10008706 (Version 2)
Quarter: 2014Q1

REPORT INFORMATION
  Report Type: Spontaneous
  Country: US (occurrence: US)
  Receive Date: 20140312
  Receipt Date: 20140312
  Transmission Date: 20141002
  Serious: No
  Sender: FDA-Public Use
  Company Number: US-INCYTE CORPORATION-2012IN000343

PATIENT
  Age: 76 Year
  Sex: Female
  Weight: 68.93 kg

DRUGS (3)
  1. JAKAFI [Suspect]
     Indication: MYELOFIBROSIS
     Dosage: 20 MG, BID
     Route: 048
     Dates: start: 20120131
  2. ASPIRIN [Concomitant]
     Dosage: 325 MG, UNK
  3. MULTIVITAMIN [Concomitant]

REACTIONS (1)
  - Blood uric acid increased [Recovered/Resolved]
